FAERS Safety Report 10591650 (Version 1)
Quarter: 2014Q4

REPORT INFORMATION
  Report Type: Spontaneous
  Country: BR (occurrence: BR)
  Receive Date: 20141118
  Receipt Date: 20141118
  Transmission Date: 20150529
  Serious: Yes (Other)
  Sender: FDA-Public Use
  Company Number: BR-GLAXOSMITHKLINE-BR2014GSK022913

PATIENT
  Age: 70 Year
  Sex: Female
  Weight: 70 kg

DRUGS (6)
  1. OMEPRAZOL [Concomitant]
     Active Substance: OMEPRAZOLE
  2. LOSARTAN [Concomitant]
     Active Substance: LOSARTAN
  3. ZOLPIDEM HEMITARTRATE [Concomitant]
     Active Substance: ZOLPIDEM\ZOLPIDEM TARTRATE
  4. RITMONORM [Suspect]
     Active Substance: PROPAFENONE HYDROCHLORIDE
     Indication: ARRHYTHMIA
     Dosage: 600 MG, BID
     Route: 048
     Dates: start: 20141029, end: 20141111
  5. RITMONORM [Suspect]
     Active Substance: PROPAFENONE HYDROCHLORIDE
     Indication: ATRIOVENTRICULAR BLOCK
  6. DIPYRONE [Concomitant]
     Active Substance: DIPYRONE

REACTIONS (14)
  - Agitation [Recovering/Resolving]
  - Insomnia [Recovering/Resolving]
  - Liver disorder [Recovered/Resolved]
  - Arrhythmia [Recovering/Resolving]
  - Headache [Recovering/Resolving]
  - Tremor [Recovered/Resolved]
  - Visual impairment [Recovering/Resolving]
  - Nervousness [Recovering/Resolving]
  - Dizziness [Recovering/Resolving]
  - Decreased appetite [Recovered/Resolved]
  - Malaise [Recovering/Resolving]
  - Dry mouth [Recovered/Resolved]
  - Nervous system disorder [Recovering/Resolving]
  - Drug ineffective [Unknown]

NARRATIVE: CASE EVENT DATE: 20141030
